FAERS Safety Report 8167127-2 (Version None)
Quarter: 2012Q1

REPORT INFORMATION
  Report Type: 
  Country: None (occurrence: None)
  Receive Date: 20120227
  Receipt Date: 20120221
  Transmission Date: 20120608
  Serious: Yes (Other)
  Sender: FDA-Public Use
  Company Number: CA-B.I. PHARMACEUTICALS,INC./RIDGEFIELD-2012-CN-00403CN

PATIENT
  Age: 61 Year
  Sex: Female

DRUGS (2)
  1. BISOPROLOL FUMARATE [Suspect]
     Route: 065
  2. SPIRIVA [Suspect]
     Dosage: 1.0 DOSAGE FORM
     Route: 055

REACTIONS (3)
  - DRUG INTERACTION [None]
  - ASTHMA [None]
  - CONDITION AGGRAVATED [None]
